FAERS Safety Report 24047554 (Version 1)
Quarter: 2024Q3

REPORT INFORMATION
  Report Type: Spontaneous
  Country: NL (occurrence: NL)
  Receive Date: 20240703
  Receipt Date: 20240703
  Transmission Date: 20241016
  Serious: Yes (Life-Threatening)
  Sender: ELI LILLY AND CO
  Company Number: NL-ELI_LILLY_AND_COMPANY-NL202407002143

PATIENT
  Age: 75 Year

DRUGS (2)
  1. SELPERCATINIB [Suspect]
     Active Substance: SELPERCATINIB
     Indication: Product used for unknown indication
     Dosage: 320 MG, DAILY
     Route: 048
     Dates: start: 20221214, end: 20230206
  2. SELPERCATINIB [Suspect]
     Active Substance: SELPERCATINIB
     Dosage: 320 MG, DAILY
     Route: 048
     Dates: start: 20230313

REACTIONS (1)
  - Hepatotoxicity [Recovered/Resolved]

NARRATIVE: CASE EVENT DATE: 20230206
